FAERS Safety Report 7259039-3 (Version None)
Quarter: 2011Q1

REPORT INFORMATION
  Report Type: 
  Country: None (occurrence: None)
  Receive Date: 20110129
  Receipt Date: 20100616
  Transmission Date: 20110831
  Serious: No
  Sender: FDA-Public Use
  Company Number: US-ABBOTT-10P-163-0652868-00

PATIENT
  Sex: Female
  Weight: 68.554 kg

DRUGS (17)
  1. HUMIRA [Suspect]
     Indication: RHEUMATOID ARTHRITIS
     Route: 058
     Dates: start: 20091116
  2. METHOCARBINOL ROBAXIN [Concomitant]
     Indication: MUSCLE SPASMS
  3. PREDNISONE [Concomitant]
     Indication: RHEUMATOID ARTHRITIS
     Route: 048
  4. OXYCONTIN [Concomitant]
     Indication: PAIN
     Route: 048
  5. KAPIDEX [Concomitant]
     Indication: GASTROOESOPHAGEAL REFLUX DISEASE
  6. METFORMIN [Concomitant]
     Indication: DIABETES MELLITUS
     Route: 048
  7. SPIRONOLACTONE [Concomitant]
     Indication: DIURETIC THERAPY
     Route: 048
  8. MAGNESIUM [Concomitant]
     Indication: PRODUCT USED FOR UNKNOWN INDICATION
  9. DIOVAN [Concomitant]
     Indication: HYPERTENSION
     Route: 048
  10. LYRICA [Concomitant]
     Indication: FIBROMYALGIA
     Route: 048
  11. MULTIVITAMIN [Concomitant]
     Indication: VITAMIN SUPPLEMENTATION
  12. ELAVIL [Concomitant]
     Indication: ANXIETY
     Route: 048
  13. CPAP [Concomitant]
     Indication: EMPHYSEMA
  14. WELCHOL [Concomitant]
     Indication: BLOOD CHOLESTEROL INCREASED
     Route: 048
  15. PROVIGIL [Concomitant]
     Indication: ASTHENIA
     Dosage: 1/2 TAB IN AM + 1/2 TAB  IN PM
  16. ZETIA [Concomitant]
     Indication: BLOOD CHOLESTEROL INCREASED
     Route: 048
  17. METHOTREXATE [Suspect]
     Indication: RHEUMATOID ARTHRITIS
     Route: 048
     Dates: start: 20100101

REACTIONS (5)
  - ALOPECIA [None]
  - MADAROSIS [None]
  - FATIGUE [None]
  - DYSPHONIA [None]
  - ORAL HERPES [None]
